FAERS Safety Report 15964871 (Version 1)
Quarter: 2019Q1

REPORT INFORMATION
  Report Type: Spontaneous
  Country: US (occurrence: US)
  Receive Date: 20190124
  Receipt Date: 20190124
  Transmission Date: 20190418
  Serious: Yes (Life-Threatening, Disabling)
  Sender: FDA-Public Use
  Company Number: None

PATIENT
  Age: 69 Year
  Sex: Female
  Weight: 90.72 kg

DRUGS (8)
  1. EHIST [Concomitant]
  2. COQ10 [Concomitant]
     Active Substance: UBIDECARENONE
  3. POTASSIUM [Concomitant]
     Active Substance: POTASSIUM
  4. HYDROCHLOROTHIAZIDE 25MG [Suspect]
     Active Substance: HYDROCHLOROTHIAZIDE
     Indication: HYPERTENSION
     Dosage: ?          QUANTITY:25 MG MILLIGRAM(S);?
     Route: 048
     Dates: start: 20180522, end: 20181221
  5. LIPOTROPIC COMPLEX [Concomitant]
  6. MAGNESIUM CITRATE. [Concomitant]
     Active Substance: MAGNESIUM CITRATE
  7. HYDROCHLOROTHIAZIDE HTN COMPLEX [Concomitant]
  8. FLAXSEED [Concomitant]
     Active Substance: FLAX SEED

REACTIONS (8)
  - Swollen tongue [None]
  - Sensitive skin [None]
  - Pharyngeal oedema [None]
  - Dysphagia [None]
  - Hypoaesthesia [None]
  - Pain of skin [None]
  - Dizziness [None]
  - Paraesthesia [None]

NARRATIVE: CASE EVENT DATE: 20181214
